FAERS Safety Report 9837942 (Version 4)
Quarter: 2014Q2

REPORT INFORMATION
  Report Type: Spontaneous
  Country: US (occurrence: US)
  Receive Date: 20140123
  Receipt Date: 20140620
  Transmission Date: 20141212
  Serious: Yes (Hospitalization)
  Sender: FDA-Public Use
  Company Number: US-BAYER-2014-010357

PATIENT
  Age: 22 Year
  Sex: Female
  Weight: 47.17 kg

DRUGS (5)
  1. MIRENA [Suspect]
     Indication: CONTRACEPTION
     Dosage: 20 MCG/24HR, CONT
     Route: 015
     Dates: start: 20100719, end: 20130518
  2. ZOLOFT [Concomitant]
     Indication: ANXIETY
     Dosage: 25 MG, UNK
     Dates: start: 20130326
  3. LORATADINE [Concomitant]
     Indication: RHINITIS ALLERGIC
     Dosage: 10 MG, UNK
     Dates: start: 20130326
  4. ALBUTEROL [Concomitant]
     Indication: ASTHMA
  5. VENTOLIN [Concomitant]
     Indication: ASTHMA

REACTIONS (18)
  - Uterine perforation [None]
  - Pelvic inflammatory disease [None]
  - Tubo-ovarian abscess [None]
  - Septic shock [None]
  - Hypotension [None]
  - Salpingitis [None]
  - Tachycardia [None]
  - Device related infection [None]
  - Neuropathy peripheral [None]
  - Off label use [None]
  - Emotional distress [None]
  - Injury [None]
  - Pelvic abscess [None]
  - Pelvic pain [None]
  - Meralgia paraesthetica [None]
  - Hypoaesthesia [None]
  - Pain in extremity [None]
  - Femoral nerve injury [None]
